FAERS Safety Report 6314739-4 (Version None)
Quarter: 2009Q3

REPORT INFORMATION
  Report Type: 
  Country: None (occurrence: None)
  Receive Date: 20090819
  Receipt Date: 20090812
  Transmission Date: 20100115
  Serious: Yes (Hospitalization, Other)
  Sender: FDA-Public Use
  Company Number: US-ABBOTT-09P-163-0589496-00

PATIENT
  Sex: Male
  Weight: 79.45 kg

DRUGS (4)
  1. HUMIRA [Suspect]
     Indication: PSORIATIC ARTHROPATHY
     Route: 058
     Dates: start: 20081204, end: 20090305
  2. HUMIRA [Suspect]
     Dates: start: 20090528, end: 20090716
  3. HUMIRA [Suspect]
     Dates: start: 20090716, end: 20090719
  4. HUMIRA [Suspect]
     Dates: start: 20090719

REACTIONS (2)
  - MEDICAL DEVICE REMOVAL [None]
  - WISDOM TEETH REMOVAL [None]
